FAERS Safety Report 14125307 (Version 2)
Quarter: 2017Q4

REPORT INFORMATION
  Report Type: Report from Study
  Country: US (occurrence: US)
  Receive Date: 20171025
  Receipt Date: 20171204
  Transmission Date: 20180321
  Serious: Yes (Life-Threatening, Other)
  Sender: FDA-Public Use
  Company Number: US-AMGEN-USASL2017161019

PATIENT
  Sex: Female

DRUGS (1)
  1. PROLIA [Suspect]
     Active Substance: DENOSUMAB
     Indication: PRODUCT USED FOR UNKNOWN INDICATION
     Dosage: UNK
     Route: 065

REACTIONS (15)
  - Trismus [Unknown]
  - Mouth swelling [Unknown]
  - Pyrexia [Unknown]
  - Pain [Unknown]
  - Influenza like illness [Unknown]
  - Osteomyelitis [Not Recovered/Not Resolved]
  - Unevaluable event [Unknown]
  - Immune system disorder [Unknown]
  - Infection [Unknown]
  - Hypoaesthesia [Unknown]
  - Bedridden [Not Recovered/Not Resolved]
  - Malaise [Unknown]
  - Thyroid neoplasm [Unknown]
  - Pharyngitis [Unknown]
  - Swelling face [Unknown]

NARRATIVE: CASE EVENT DATE: 201705
